FAERS Safety Report 16623238 (Version 3)
Quarter: 2021Q3

REPORT INFORMATION
  Report Type: Spontaneous
  Country: US (occurrence: US)
  Receive Date: 20190723
  Receipt Date: 20210929
  Transmission Date: 20211014
  Serious: Yes (Other)
  Sender: FDA-Public Use
  Company Number: US-UCBSA-2019026836

PATIENT
  Age: 37 Year
  Sex: Female
  Weight: 62.5 kg

DRUGS (4)
  1. CIMZIA [Suspect]
     Active Substance: CERTOLIZUMAB PEGOL
     Dosage: 400 MILLIGRAM, EV 4 WEEKS
     Route: 058
  2. CIMZIA [Suspect]
     Active Substance: CERTOLIZUMAB PEGOL
     Dosage: 400 MILLIGRAM, 2X/MONTH
     Route: 058
     Dates: start: 20190618
  3. CIMZIA [Suspect]
     Active Substance: CERTOLIZUMAB PEGOL
     Dosage: UNK EV 3 WEEKS
     Route: 058
  4. CIMZIA [Suspect]
     Active Substance: CERTOLIZUMAB PEGOL
     Indication: CROHN^S DISEASE
     Dosage: 400 MILLIGRAM, EV 2 WEEKS(QOW)
     Route: 058
     Dates: start: 2016

REACTIONS (9)
  - Insurance issue [Unknown]
  - Eye swelling [Unknown]
  - Eye irritation [Unknown]
  - Ocular hyperaemia [Unknown]
  - Inappropriate schedule of product administration [Unknown]
  - Off label use [Unknown]
  - Dry eye [Unknown]
  - Drug ineffective [Unknown]
  - Photophobia [Unknown]

NARRATIVE: CASE EVENT DATE: 20190618
